FAERS Safety Report 8065458-8 (Version None)
Quarter: 2012Q1

REPORT INFORMATION
  Report Type: 
  Country: None (occurrence: None)
  Receive Date: 20120124
  Receipt Date: 20120120
  Transmission Date: 20120608
  Serious: Yes (Other)
  Sender: FDA-Public Use
  Company Number: US-AMGEN-USASP2011028738

PATIENT
  Age: 86 Year
  Sex: Male
  Weight: 65.76 kg

DRUGS (1)
  1. NPLATE [Suspect]
     Indication: IDIOPATHIC THROMBOCYTOPENIC PURPURA
     Dosage: 130 MUG, UNK
     Route: 058
     Dates: start: 20090204, end: 20100622

REACTIONS (1)
  - THROMBOCYTOSIS [None]
